FAERS Safety Report 16596946 (Version 2)
Quarter: 2019Q3

REPORT INFORMATION
  Report Type: Report from Study
  Country: BR (occurrence: BR)
  Receive Date: 20190719
  Receipt Date: 20190822
  Transmission Date: 20191004
  Serious: Yes (Hospitalization, Other)
  Sender: FDA-Public Use
  Company Number: BR-UCBSA-2019029645

PATIENT
  Sex: Male
  Weight: 18 kg

DRUGS (3)
  1. CLOBAZAM. [Concomitant]
     Active Substance: CLOBAZAM
     Indication: PRODUCT USED FOR UNKNOWN INDICATION
  2. DIPYRONE [Concomitant]
     Active Substance: DIPYRONE
     Indication: PRODUCT USED FOR UNKNOWN INDICATION
  3. LEVETIRACETAM. [Suspect]
     Active Substance: LEVETIRACETAM
     Indication: EPILEPSY
     Dosage: 4ML IN THE MORNING, AND 4.5 ML AT NIGHT, 2X/DAY (BID)
     Route: 048
     Dates: start: 2017

REACTIONS (4)
  - Weight increased [Not Recovered/Not Resolved]
  - Off label use [Unknown]
  - Brain operation [Recovered/Resolved]
  - Increased appetite [Unknown]

NARRATIVE: CASE EVENT DATE: 2017
